FAERS Safety Report 17102012 (Version 2)
Quarter: 2019Q4

REPORT INFORMATION
  Report Type: Spontaneous
  Country: JP (occurrence: JP)
  Receive Date: 20191202
  Receipt Date: 20191209
  Transmission Date: 20200122
  Serious: Yes (Death, Other)
  Sender: FDA-Public Use
  Company Number: JP-JAZZ-2019-JP-016733

PATIENT
  Age: 50 Year
  Sex: Male

DRUGS (1)
  1. DEFITELIO [Suspect]
     Active Substance: DEFIBROTIDE SODIUM
     Indication: PRODUCT USED FOR UNKNOWN INDICATION
     Dosage: 25 MG/KG/DAY
     Route: 042
     Dates: start: 20191014, end: 20191105

REACTIONS (3)
  - Organ failure [Fatal]
  - Cerebral haemorrhage [Fatal]
  - Gastrointestinal infection [Fatal]
